FAERS Safety Report 7596341-X (Version None)
Quarter: 2011Q3

REPORT INFORMATION
  Report Type: 
  Country: None (occurrence: None)
  Receive Date: 20110707
  Receipt Date: 20110627
  Transmission Date: 20111222
  Serious: Yes (Hospitalization, Other)
  Sender: FDA-Public Use
  Company Number: US-AMGEN-USASP2011032836

PATIENT
  Age: 57 Year
  Sex: Female

DRUGS (4)
  1. MORPHINE [Concomitant]
  2. XGEVA [Suspect]
     Indication: METASTASES TO BONE
     Dosage: UNK UNK, Q4WK
     Dates: start: 20110301
  3. DECADRON [Concomitant]
  4. ARIMIDEX [Concomitant]

REACTIONS (2)
  - ABDOMINAL PAIN [None]
  - MOBILITY DECREASED [None]
